FAERS Safety Report 4955964-4 (Version None)
Quarter: 2006Q1

REPORT INFORMATION
  Report Type: 
  Country: None (occurrence: None)
  Receive Date: 20060328
  Receipt Date: 20051025
  Transmission Date: 20060701
  Serious: Yes (Other)
  Sender: FDA-Public Use
  Company Number: US-MERCK-0510USA09014

PATIENT
  Sex: Female
  Weight: 93 kg

DRUGS (5)
  1. VIOXX [Suspect]
     Indication: ARTHRALGIA
     Route: 048
     Dates: start: 20000101, end: 20031001
  2. CELEBREX [Concomitant]
     Route: 065
  3. PLAVIX [Concomitant]
     Route: 065
  4. ECOTRIN [Concomitant]
     Route: 065
  5. NORVASC [Concomitant]
     Indication: HYPERTENSION
     Route: 065

REACTIONS (9)
  - ARTHRITIS [None]
  - ARTHROPATHY [None]
  - CEREBROVASCULAR ACCIDENT [None]
  - CHEST PAIN [None]
  - DEPRESSION [None]
  - DYSPNOEA [None]
  - HYPERTENSION [None]
  - NAUSEA [None]
  - VOMITING [None]
